FAERS Safety Report 20680969 (Version 1)
Quarter: 2022Q2

REPORT INFORMATION
  Report Type: Spontaneous
  Country: US (occurrence: US)
  Receive Date: 20220406
  Receipt Date: 20220406
  Transmission Date: 20220721
  Serious: No
  Sender: FDA-Public Use
  Company Number: US-PFIZER INC-2021894717

PATIENT
  Age: 36 Year
  Sex: Female

DRUGS (3)
  1. IBRANCE [Suspect]
     Active Substance: PALBOCICLIB
     Dosage: 125 MG, CYCLIC
     Dates: start: 20210622
  2. IBRANCE [Suspect]
     Active Substance: PALBOCICLIB
     Dosage: 125 MG, CYCLIC
     Dates: start: 20210408
  3. IBRANCE [Suspect]
     Active Substance: PALBOCICLIB
     Dosage: 125 MG, CYCLIC
     Dates: start: 20210526

REACTIONS (6)
  - Nausea [Recovering/Resolving]
  - Ear pain [Recovering/Resolving]
  - Vomiting [Unknown]
  - Eye colour change [Recovering/Resolving]
  - Epistaxis [Unknown]
  - Stomatitis [Unknown]

NARRATIVE: CASE EVENT DATE: 20210701
